FAERS Safety Report 25707604 (Version 1)
Quarter: 2025Q3

REPORT INFORMATION
  Report Type: Spontaneous
  Country: US (occurrence: US)
  Receive Date: 20250820
  Receipt Date: 20250820
  Transmission Date: 20251020
  Serious: No
  Sender: SANDOZ
  Company Number: US-SANDOZ-SDZ2025US060256

PATIENT
  Sex: Female

DRUGS (3)
  1. DUPIXENT [Suspect]
     Active Substance: DUPILUMAB
     Dosage: 200 MG, QW
     Route: 065
     Dates: start: 202501
  2. DUPIXENT [Suspect]
     Active Substance: DUPILUMAB
     Indication: Dermatitis atopic
     Dosage: 300 MG, QW
     Route: 058
     Dates: start: 20220120
  3. TACROLIMUS [Suspect]
     Active Substance: TACROLIMUS
     Indication: Rash
     Route: 065

REACTIONS (8)
  - Burning sensation [Unknown]
  - Skin burning sensation [Unknown]
  - Fatigue [Unknown]
  - COVID-19 [Unknown]
  - Rebound atopic dermatitis [Unknown]
  - Headache [Unknown]
  - Pruritus [Unknown]
  - Inappropriate schedule of product administration [Unknown]
